FAERS Safety Report 7586421-7 (Version None)
Quarter: 2011Q3

REPORT INFORMATION
  Report Type: 
  Country: None (occurrence: None)
  Receive Date: 20110701
  Receipt Date: 20110622
  Transmission Date: 20111222
  Serious: Yes (Congenital Anomaly)
  Sender: FDA-Public Use
  Company Number: B0713617A

PATIENT
  Sex: Female

DRUGS (1)
  1. VALTREX [Suspect]
     Route: 048

REACTIONS (2)
  - MATERNAL EXPOSURE DURING PREGNANCY [None]
  - ABORTION [None]
